FAERS Safety Report 11581294 (Version 1)
Quarter: 2015Q4

REPORT INFORMATION
  Report Type: Spontaneous
  Country: US (occurrence: US)
  Receive Date: 20151001
  Receipt Date: 20151001
  Transmission Date: 20160304
  Serious: No
  Sender: FDA-Public Use
  Company Number: US-ROCHE-707071

PATIENT
  Sex: Female

DRUGS (2)
  1. PEGASYS [Suspect]
     Active Substance: PEGINTERFERON ALFA-2A
     Indication: HEPATITIS C
     Dosage: FORM: PREFILLED SYRINGE
     Route: 058
  2. COPEGUS [Suspect]
     Active Substance: RIBAVIRIN
     Indication: HEPATITIS C
     Dosage: DIVIDED DOSES
     Route: 048

REACTIONS (7)
  - Ear pain [Unknown]
  - Dyspnoea [Recovered/Resolved]
  - Tongue ulceration [Recovered/Resolved]
  - Oropharyngeal pain [Unknown]
  - Rash [Recovered/Resolved]
  - Productive cough [Recovered/Resolved]
  - Weight decreased [Unknown]
